FAERS Safety Report 15357724 (Version 7)
Quarter: 2019Q3

REPORT INFORMATION
  Report Type: Report from Study
  Country: US (occurrence: US)
  Receive Date: 20180906
  Receipt Date: 20190703
  Transmission Date: 20191004
  Serious: Yes (Hospitalization)
  Sender: FDA-Public Use
  Company Number: US-ACTELION-A-NJ2018-174318

PATIENT
  Age: 38 Year
  Sex: Female

DRUGS (6)
  1. VERAPAMIL [Concomitant]
     Active Substance: VERAPAMIL HYDROCHLORIDE
  2. TRACLEER [Suspect]
     Active Substance: BOSENTAN
     Indication: PULMONARY HYPERTENSION
     Dosage: 125 MG, BID
     Route: 048
     Dates: start: 20141204
  3. SILDENAFIL. [Concomitant]
     Active Substance: SILDENAFIL
  4. ASPIRIN. [Concomitant]
     Active Substance: ASPIRIN
  5. REMODULIN [Suspect]
     Active Substance: TREPROSTINIL
     Indication: PRODUCT USED FOR UNKNOWN INDICATION
     Dosage: UNK
     Route: 042
  6. LIPITOR [Concomitant]
     Active Substance: ATORVASTATIN CALCIUM

REACTIONS (20)
  - Catheter site infection [Unknown]
  - Acute myocardial infarction [Unknown]
  - Chest pain [Unknown]
  - Chills [Unknown]
  - Chest discomfort [Unknown]
  - Bacteraemia [Unknown]
  - Headache [Unknown]
  - Rash [Unknown]
  - Palpitations [Unknown]
  - Administration site infection [Unknown]
  - Anti-thyroid antibody [Unknown]
  - Dyspnoea [Unknown]
  - Electrocardiogram ST segment depression [Unknown]
  - Upper respiratory tract infection [Unknown]
  - Staphylococcal infection [Unknown]
  - Staphylococcal bacteraemia [Unknown]
  - Thyroiditis subacute [Unknown]
  - Diarrhoea [Unknown]
  - Blood thyroid stimulating hormone decreased [Unknown]
  - Cellulitis [Unknown]

NARRATIVE: CASE EVENT DATE: 20180615
